FAERS Safety Report 7850076-4 (Version None)
Quarter: 2011Q4

REPORT INFORMATION
  Report Type: 
  Country: None (occurrence: None)
  Receive Date: 20111026
  Receipt Date: 20111021
  Transmission Date: 20120403
  Serious: Yes (Hospitalization)
  Sender: FDA-Public Use
  Company Number: CA-JNJFOC-20111010257

PATIENT
  Sex: Female

DRUGS (3)
  1. PREDNISONE [Concomitant]
     Route: 048
  2. ASTHMA INHALER [Concomitant]
     Indication: ASTHMA
     Route: 055
  3. SIMPONI [Suspect]
     Indication: RHEUMATOID ARTHRITIS
     Route: 058

REACTIONS (1)
  - PNEUMONIA [None]
